FAERS Safety Report 4849597-8 (Version None)
Quarter: 2005Q4

REPORT INFORMATION
  Report Type: 
  Country: None (occurrence: None)
  Receive Date: 20051207
  Receipt Date: 20051125
  Transmission Date: 20060501
  Serious: Yes (Life-Threatening, Hospitalization)
  Sender: FDA-Public Use
  Company Number: 2005JP002171

PATIENT
  Age: 31 Year
  Sex: Female

DRUGS (5)
  1. PROGRAF [Suspect]
     Indication: BONE MARROW TRANSPLANT
     Dates: start: 19980101
  2. PROGRAF [Suspect]
     Indication: BONE MARROW TRANSPLANT
     Dates: start: 20041202
  3. STEROID [Concomitant]
  4. SIMULECT [Concomitant]
  5. CELLCEPT [Concomitant]

REACTIONS (5)
  - LUNG TRANSPLANT [None]
  - OBLITERATIVE BRONCHIOLITIS [None]
  - PNEUMATOSIS INTESTINALIS [None]
  - PNEUMOMEDIASTINUM [None]
  - RESPIRATORY FAILURE [None]
